FAERS Safety Report 8388907 (Version 9)
Quarter: 2013Q2

REPORT INFORMATION
  Report Type: Spontaneous
  Country: FR (occurrence: FR)
  Receive Date: 20120203
  Receipt Date: 20130614
  Transmission Date: 20140414
  Serious: Yes (Hospitalization, Other)
  Sender: FDA-Public Use
  Company Number: FR-PFIZER INC-2012023994

PATIENT
  Age: 57 Year
  Sex: Female

DRUGS (9)
  1. LYRICA [Suspect]
     Dosage: UNK
     Dates: start: 20110725, end: 20110817
  2. EUPANTOL [Suspect]
     Dosage: UNK
     Route: 048
     Dates: start: 20110718, end: 20110817
  3. TAVANIC [Suspect]
     Indication: ANTIBIOTIC THERAPY
     Dosage: UNK
     Route: 065
     Dates: start: 20110707, end: 20110810
  4. TAVANIC [Suspect]
     Dosage: UNK
  5. RIFADINE [Suspect]
     Indication: ANTIBIOTIC THERAPY
     Dosage: UNK
     Dates: start: 20110707, end: 20110810
  6. RIFADINE [Suspect]
     Dosage: UNK
  7. RIVOTRIL [Suspect]
     Dosage: UNK
     Dates: start: 20110720, end: 20110817
  8. ACUPAN [Suspect]
     Dosage: UNK
     Dates: start: 20110722, end: 20110813
  9. ACUPAN [Suspect]
     Dosage: UNK

REACTIONS (1)
  - Drug reaction with eosinophilia and systemic symptoms [Recovered/Resolved]
